FAERS Safety Report 14974734 (Version 2)
Quarter: 2018Q2

REPORT INFORMATION
  Report Type: Spontaneous
  Country: ZA (occurrence: ZA)
  Receive Date: 20180605
  Receipt Date: 20180608
  Transmission Date: 20180711
  Serious: Yes (Hospitalization)
  Sender: FDA-Public Use
  Company Number: ZA-PFIZER INC-2018227910

PATIENT
  Age: 76 Year
  Sex: Male

DRUGS (11)
  1. MEMOR [Suspect]
     Active Substance: MEMANTINE HYDROCHLORIDE
     Dosage: 10 MG, UNK
  2. URBANOL [Suspect]
     Active Substance: CLOBAZAM
     Dosage: 10 MG, UNK
  3. ASPAVOR [Suspect]
     Active Substance: ATORVASTATIN
     Dosage: 10 MG, UNK
  4. BETMIGA [Suspect]
     Active Substance: MIRABEGRON
     Dosage: 50 MG, UNK
  5. YELATE [Suspect]
     Active Substance: DULOXETINE HYDROCHLORIDE
     Dosage: 60 MG, UNK
  6. FLUANXOL [Suspect]
     Active Substance: FLUPENTIXOL
     Dosage: 1 MG, UNK
  7. ALCHERA [Suspect]
     Active Substance: ZOPICLONE
     Dosage: 7.5 MG, UNK
  8. NEXMEZOL [Suspect]
     Active Substance: ESOMEPRAZOLE MAGNESIUM
     Dosage: 40 MG, UNK
  9. TAMSUL [Suspect]
     Active Substance: TAMSULOSIN HYDROCHLORIDE
     Dosage: 0.4 MG, UNK
  10. PHARMAPRESS (ENALAPRIL MALEATE) [Suspect]
     Active Substance: ENALAPRIL MALEATE
     Dosage: 10 MG, UNK
  11. ENABLEX [Suspect]
     Active Substance: DARIFENACIN HYDROBROMIDE
     Dosage: 7.5 MG, UNK

REACTIONS (1)
  - Fall [Unknown]
